FAERS Safety Report 8029867-5 (Version None)
Quarter: 2012Q1

REPORT INFORMATION
  Report Type: 
  Country: None (occurrence: None)
  Receive Date: 20120109
  Receipt Date: 20111230
  Transmission Date: 20120608
  Serious: Yes (Hospitalization)
  Sender: FDA-Public Use
  Company Number: US-ELI_LILLY_AND_COMPANY-US201201000882

PATIENT
  Age: 79 Year
  Sex: Female

DRUGS (2)
  1. HUMATROPE [Suspect]
     Indication: PITUITARY TUMOUR
     Dosage: UNK
  2. PREDNISONE TAB [Concomitant]

REACTIONS (7)
  - CARDIAC FAILURE CONGESTIVE [None]
  - CARDIAC DISORDER [None]
  - MALAISE [None]
  - DRUG DOSE OMISSION [None]
  - CATARACT [None]
  - PNEUMONIA [None]
  - MEMORY IMPAIRMENT [None]
